FAERS Safety Report 24532777 (Version 1)
Quarter: 2024Q4

REPORT INFORMATION
  Report Type: Spontaneous
  Country: US (occurrence: US)
  Receive Date: 20241022
  Receipt Date: 20241022
  Transmission Date: 20250115
  Serious: Yes (Hospitalization)
  Sender: HISAMITSU PHARM
  Company Number: US-HISAMITSU-2024-US-054507

PATIENT
  Age: 72 Year
  Sex: Female
  Weight: 107.5 kg

DRUGS (7)
  1. SALONPAS PAIN RELIEVING [Suspect]
     Active Substance: CAMPHOR (SYNTHETIC)\MENTHOL\METHYL SALICYLATE
     Indication: Analgesic therapy
     Dosage: 8 PATCHES SIMULTANEOUSLY: 1 ON NECK, 1 TO EACH SHOULDER, 2 ON HER BACK, 1 ON EACH BUTTOCK AND 1 ON H
     Route: 061
     Dates: start: 20241004, end: 20241005
  2. ASPIRIN [Concomitant]
     Active Substance: ASPIRIN
  3. ALLOPURINOL [Concomitant]
     Active Substance: ALLOPURINOL
  4. unspecified medication for hypertension [Concomitant]
  5. unspecified medication for bone density [Concomitant]
  6. unspecified medication for anxiety [Concomitant]
  7. unspecified medication for high cholesterol [Concomitant]

REACTIONS (10)
  - Blindness transient [Recovered/Resolved]
  - Blood pressure decreased [Recovered/Resolved]
  - Haemoptysis [Recovered/Resolved]
  - Oxygen saturation decreased [Recovering/Resolving]
  - Cyanosis [Recovered/Resolved]
  - Pneumonia bacterial [Recovering/Resolving]
  - Thrombosis [Unknown]
  - Dyspnoea [Recovering/Resolving]
  - Incorrect product administration duration [Recovered/Resolved]
  - Dizziness [Recovered/Resolved]

NARRATIVE: CASE EVENT DATE: 20241005
